FAERS Safety Report 4599851-2 (Version None)
Quarter: 2005Q1

REPORT INFORMATION
  Report Type: 
  Country: None (occurrence: None)
  Receive Date: 20050303
  Receipt Date: 20050211
  Transmission Date: 20050727
  Serious: Yes (Hospitalization, Other)
  Sender: FDA-Public Use
  Company Number: USA040363116

PATIENT
  Age: 78 Year
  Sex: Male
  Weight: 78 kg

DRUGS (13)
  1. FORTEO [Suspect]
     Indication: OSTEOPOROSIS
     Dosage: 20 UG / 1 DAY
     Dates: start: 20030818
  2. METHOTREXATE [Concomitant]
  3. ULTRAM [Concomitant]
  4. CELEBREX [Concomitant]
  5. ZOCOR [Concomitant]
  6. LANOXIN [Concomitant]
  7. MULTI-VITAMIN [Concomitant]
  8. CALCIUM GLUCONATE [Concomitant]
  9. LEVOTHYROXINE [Concomitant]
  10. VALIUM [Concomitant]
  11. DURAGESIC (FENTANYL) [Concomitant]
  12. LIPITOR [Concomitant]
  13. PREVACID [Concomitant]

REACTIONS (6)
  - CEREBRAL THROMBOSIS [None]
  - DIZZINESS [None]
  - HEADACHE [None]
  - JOINT DISLOCATION [None]
  - LOSS OF CONSCIOUSNESS [None]
  - PHARMACEUTICAL PRODUCT COMPLAINT [None]
